FAERS Safety Report 8885593 (Version 1)
Quarter: 2012Q4

REPORT INFORMATION
  Report Type: 
  Country: US (occurrence: US)
  Receive Date: 20121101
  Receipt Date: 20121101
  Transmission Date: 20130627
  Serious: No
  Sender: FDA-Public Use
  Company Number: US-PFIZER INC-2012267426

PATIENT
  Age: 9 Year
  Sex: Male

DRUGS (4)
  1. GENOTROPIN [Suspect]
     Indication: GROWTH FAILURE
     Dosage: 1 mg, 1x/day
     Dates: start: 201205, end: 2012
  2. GENOTROPIN [Suspect]
     Dosage: 0.5 mg, 1x/day
     Dates: start: 2012, end: 2012
  3. GENOTROPIN [Suspect]
     Dosage: 1 mg, 1x/day
     Dates: start: 2012
  4. VYVANSE [Concomitant]
     Indication: ATTENTION DEFICIT-HYPERACTIVITY DISORDER
     Dosage: 40 mg, daily

REACTIONS (1)
  - Headache [Recovered/Resolved]
